FAERS Safety Report 6039128-1 (Version None)
Quarter: 2009Q1

REPORT INFORMATION
  Report Type: 
  Country: None (occurrence: None)
  Receive Date: 20090115
  Receipt Date: 20090105
  Transmission Date: 20090719
  Serious: Yes (Other)
  Sender: FDA-Public Use
  Company Number: US-PFIZER INC-2009154868

PATIENT
  Sex: Female

DRUGS (4)
  1. ZYRTEC [Suspect]
     Indication: HYPERSENSITIVITY
     Dosage: UNK
     Route: 048
  2. BENZODIAZEPINE DERIVATIVES [Suspect]
  3. LEXAPRO [Concomitant]
     Indication: DEPRESSION
     Dosage: 20 MG, 1X/DAY
     Route: 048
     Dates: start: 20070101, end: 20080101
  4. XANAX [Concomitant]
     Indication: ANXIETY
     Dosage: 0.5 MG, 3X/DAY
     Route: 048
     Dates: start: 20070101, end: 20080101

REACTIONS (2)
  - DRUG SCREEN POSITIVE [None]
  - LOSS OF EMPLOYMENT [None]
